FAERS Safety Report 7306760-4 (Version None)
Quarter: 2011Q1

REPORT INFORMATION
  Report Type: 
  Country: None (occurrence: None)
  Receive Date: 20110222
  Receipt Date: 20110210
  Transmission Date: 20110831
  Serious: Yes (Hospitalization)
  Sender: FDA-Public Use
  Company Number: IT-BAYER-2011-013945

PATIENT
  Sex: Male

DRUGS (9)
  1. CIPROFLOXACIN MONOHYDROCHLORIDE [Suspect]
     Indication: EPIDIDYMITIS
     Dosage: 1000 MG, QD
     Route: 048
     Dates: start: 20101218, end: 20101224
  2. RIBAVIRIN [Concomitant]
     Dosage: UNK
     Dates: start: 20101103, end: 20101117
  3. AZATHIOPRIN [Concomitant]
     Indication: LIVER TRANSPLANT
  4. APROVEL [Concomitant]
  5. INSULIN [Concomitant]
  6. ZEFFIX [Concomitant]
  7. INTERFERON ALFA-2A [Concomitant]
  8. HYALGAN [Concomitant]
     Indication: ARTHRALGIA
     Dosage: 20 MG/2 ML
     Route: 030
     Dates: start: 20101105, end: 20101105
  9. CYCLOSPORINE [Concomitant]
     Indication: LIVER TRANSPLANT

REACTIONS (2)
  - GENITAL ERYTHEMA [None]
  - ARTHRITIS [None]
